FAERS Safety Report 23193458 (Version 2)
Quarter: 2023Q4

REPORT INFORMATION
  Report Type: Spontaneous
  Country: US (occurrence: US)
  Receive Date: 20231116
  Receipt Date: 20231124
  Transmission Date: 20240109
  Serious: Yes (Hospitalization, Other)
  Sender: FDA-Public Use
  Company Number: US-TEVA-2023-US-2944357

PATIENT
  Age: 60 Year
  Sex: Female

DRUGS (3)
  1. VINORELBINE [Suspect]
     Active Substance: VINORELBINE TARTRATE
     Indication: Squamous cell carcinoma of the cervix
     Route: 065
  2. BEVACIZUMAB [Suspect]
     Active Substance: BEVACIZUMAB
     Indication: Squamous cell carcinoma of the cervix
     Dosage: FOR 7 MONTHS
     Route: 065
  3. PEMBROLIZUMAB [Suspect]
     Active Substance: PEMBROLIZUMAB
     Indication: Squamous cell carcinoma of the cervix
     Route: 065

REACTIONS (9)
  - Pneumoperitoneum [Recovering/Resolving]
  - Intestinal perforation [Recovering/Resolving]
  - Ileus [Recovering/Resolving]
  - Dehiscence [Recovering/Resolving]
  - Wound evisceration [Recovering/Resolving]
  - Mental status changes [Recovering/Resolving]
  - Hyponatraemia [Recovering/Resolving]
  - Hypervolaemia [Recovering/Resolving]
  - Drug ineffective [Unknown]
